FAERS Safety Report 9111768 (Version 1)
Quarter: 2013Q1

REPORT INFORMATION
  Report Type: Spontaneous
  Country: US (occurrence: US)
  Receive Date: 20130219
  Receipt Date: 20130219
  Transmission Date: 20140127
  Serious: Yes (Hospitalization)
  Sender: FDA-Public Use
  Company Number: US-BRISTOL-MYERS SQUIBB COMPANY-16450041

PATIENT
  Sex: Female

DRUGS (2)
  1. ORENCIA [Suspect]
     Route: 042
  2. BENADRYL [Concomitant]
     Indication: PREMEDICATION

REACTIONS (2)
  - Localised infection [Unknown]
  - Nausea [Unknown]
